FAERS Safety Report 18554606 (Version 8)
Quarter: 2025Q2

REPORT INFORMATION
  Report Type: Report from Study
  Country: US (occurrence: US)
  Receive Date: 20201127
  Receipt Date: 20250428
  Transmission Date: 20250716
  Serious: Yes (Hospitalization, Other)
  Sender: TAKEDA
  Company Number: US-SHIRE-US202018495

PATIENT
  Age: 36 Year
  Sex: Female

DRUGS (9)
  1. LANADELUMAB [Suspect]
     Active Substance: LANADELUMAB
     Indication: Prophylaxis
     Dosage: 300 MILLIGRAM, Q2WEEKS
  2. LANADELUMAB [Suspect]
     Active Substance: LANADELUMAB
     Indication: Hereditary angioedema
     Dosage: 300 MILLIGRAM, Q2WEEKS
  3. LANADELUMAB [Suspect]
     Active Substance: LANADELUMAB
     Dosage: 1 DOSAGE FORM, Q4WEEKS
  4. LANADELUMAB [Suspect]
     Active Substance: LANADELUMAB
     Dosage: 300 MILLIGRAM, 2/WEEK
     Dates: start: 20181128
  5. LANADELUMAB [Suspect]
     Active Substance: LANADELUMAB
     Dosage: 1 DOSAGE FORM, Q2WEEKS
  6. LANADELUMAB [Suspect]
     Active Substance: LANADELUMAB
     Dosage: 300 MILLIGRAM, 2/WEEK
  7. FIRAZYR [Suspect]
     Active Substance: ICATIBANT ACETATE
     Indication: Product used for unknown indication
  8. FIRAZYR [Suspect]
     Active Substance: ICATIBANT ACETATE
  9. FIRAZYR [Suspect]
     Active Substance: ICATIBANT ACETATE

REACTIONS (8)
  - Suicidal ideation [Not Recovered/Not Resolved]
  - Major depression [Not Recovered/Not Resolved]
  - Pregnancy [Recovered/Resolved]
  - Product dose omission issue [Recovering/Resolving]
  - Insurance issue [Unknown]
  - Product use issue [Unknown]
  - Headache [Recovering/Resolving]
  - Hereditary angioedema [Unknown]

NARRATIVE: CASE EVENT DATE: 20210726
